FAERS Safety Report 7993581-2 (Version None)
Quarter: 2011Q4

REPORT INFORMATION
  Report Type: 
  Country: None (occurrence: None)
  Receive Date: 20111219
  Receipt Date: 20111209
  Transmission Date: 20120403
  Serious: Yes (Other)
  Sender: FDA-Public Use
  Company Number: US-ASTRAZENECA-2011SE74598

PATIENT
  Age: 60 Year
  Sex: Male

DRUGS (3)
  1. BRILINTA [Suspect]
     Route: 048
  2. COUMADIN [Concomitant]
     Indication: ATRIAL FIBRILLATION
  3. ASPIRIN [Concomitant]

REACTIONS (2)
  - PLATELET COUNT DECREASED [None]
  - RASH GENERALISED [None]
